FAERS Safety Report 5644730-2 (Version None)
Quarter: 2008Q1

REPORT INFORMATION
  Report Type: 
  Country: None (occurrence: None)
  Receive Date: 20080229
  Receipt Date: 20070627
  Transmission Date: 20080703
  Serious: No
  Sender: FDA-Public Use
  Company Number: A0660354A

PATIENT
  Age: 43 Year
  Sex: Female

DRUGS (2)
  1. VALTREX [Suspect]
     Indication: GENITAL HERPES
     Route: 048
  2. NO CONCURRENT MEDICATION [Concomitant]

REACTIONS (2)
  - ABDOMINAL PAIN [None]
  - VULVOVAGINAL PRURITUS [None]
